FAERS Safety Report 9284618 (Version 2)
Quarter: 2013Q2

REPORT INFORMATION
  Report Type: Spontaneous
  Country: US (occurrence: US)
  Receive Date: 20130513
  Receipt Date: 20130612
  Transmission Date: 20140414
  Serious: Yes (Other)
  Sender: FDA-Public Use
  Company Number: US-009507513-1305USA004433

PATIENT
  Sex: Female

DRUGS (5)
  1. PEG-INTRON [Suspect]
     Indication: HEPATITIS C
     Dosage: UNK
     Dates: start: 20070101
  2. PEG-INTRON [Suspect]
     Dosage: UNK
     Dates: start: 20130412
  3. REBETOL [Suspect]
     Indication: HEPATITIS C
     Dosage: UNK
     Route: 048
     Dates: start: 20070101
  4. REBETOL [Suspect]
     Dosage: UNK
     Route: 048
     Dates: start: 20130412
  5. VICTRELIS [Suspect]
     Indication: HEPATITIS C
     Dosage: UNK
     Dates: start: 20130510

REACTIONS (15)
  - Suicide attempt [Unknown]
  - Musculoskeletal disorder [Unknown]
  - Chills [Unknown]
  - Depression [Unknown]
  - Drug ineffective [Unknown]
  - Therapeutic response decreased [Unknown]
  - Pyrexia [Unknown]
  - Headache [Unknown]
  - Asthenia [Unknown]
  - Vomiting [Unknown]
  - Haematuria [Unknown]
  - Cystitis [Unknown]
  - Urinary tract infection [Unknown]
  - Blood disorder [Unknown]
  - Fatigue [Unknown]
